FAERS Safety Report 17053031 (Version 1)
Quarter: 2019Q4

REPORT INFORMATION
  Report Type: Spontaneous
  Country: US (occurrence: US)
  Receive Date: 20191120
  Receipt Date: 20191120
  Transmission Date: 20200122
  Serious: Yes (Other)
  Sender: FDA-Public Use
  Company Number: None

PATIENT
  Age: 57 Year
  Sex: Male
  Weight: 72 kg

DRUGS (1)
  1. POLIVY [Suspect]
     Active Substance: POLATUZUMAB VEDOTIN-PIIQ
     Route: 042
     Dates: start: 20191017

REACTIONS (4)
  - Infusion site vesicles [None]
  - Infusion site erythema [None]
  - Infusion site necrosis [None]
  - Infusion site extravasation [None]

NARRATIVE: CASE EVENT DATE: 20191017
